FAERS Safety Report 24304352 (Version 1)
Quarter: 2024Q3

REPORT INFORMATION
  Report Type: Spontaneous
  Country: US (occurrence: US)
  Receive Date: 20240910
  Receipt Date: 20240910
  Transmission Date: 20241016
  Serious: No
  Sender: MISSION
  Company Number: US-Mission Pharmacal Company-2161443

PATIENT
  Age: 67 Year
  Sex: Male

DRUGS (9)
  1. THIOLA EC [Suspect]
     Active Substance: TIOPRONIN
     Indication: Cystinuria
     Route: 048
     Dates: start: 20191020
  2. LOVAZA [Concomitant]
     Active Substance: OMEGA-3-ACID ETHYL ESTERS
  3. TIZANIDINE [Concomitant]
     Active Substance: TIZANIDINE
  4. TAMSULOSIN [Concomitant]
     Active Substance: TAMSULOSIN
  5. SIMVASTATIN [Concomitant]
     Active Substance: SIMVASTATIN
  6. POTASSIUM CITRATE [Concomitant]
     Active Substance: POTASSIUM CITRATE
  7. PERCOCET [Concomitant]
     Active Substance: ACETAMINOPHEN\OXYCODONE HYDROCHLORIDE
  8. NAPROXEN [Concomitant]
     Active Substance: NAPROXEN
  9. MORPHINE [Concomitant]
     Active Substance: MORPHINE

REACTIONS (3)
  - Headache [Unknown]
  - Kidney fibrosis [Unknown]
  - Infection [Unknown]
